FAERS Safety Report 8352388-7 (Version None)
Quarter: 2012Q2

REPORT INFORMATION
  Report Type: 
  Country: None (occurrence: None)
  Receive Date: 20120509
  Receipt Date: 20120430
  Transmission Date: 20120825
  Serious: No
  Sender: FDA-Public Use
  Company Number: 2012MA005557

PATIENT
  Age: 32 Year
  Sex: Female

DRUGS (3)
  1. FLUVOXAMINE MALEATE [Suspect]
     Indication: OBSESSIVE-COMPULSIVE DISORDER
     Dosage: 250 MG;QD
  2. ARIPIPRAZOLE [Concomitant]
  3. OLANZAPINE [Concomitant]

REACTIONS (3)
  - DERMATILLOMANIA [None]
  - THERAPEUTIC RESPONSE DECREASED [None]
  - OBSESSIVE THOUGHTS [None]
